FAERS Safety Report 8443920-3 (Version None)
Quarter: 2012Q2

REPORT INFORMATION
  Report Type: 
  Country: None (occurrence: None)
  Receive Date: 20120618
  Receipt Date: 20120608
  Transmission Date: 20120825
  Serious: Yes (Hospitalization, Other)
  Sender: FDA-Public Use
  Company Number: US-BAYER-2011-022283

PATIENT
  Age: 28 Year
  Sex: Female
  Weight: 86 kg

DRUGS (5)
  1. CYMBALTA [Concomitant]
     Indication: DEPRESSION
     Dosage: 60 MG, UNK
     Dates: start: 20090101
  2. HERBAL PREPARATION [Concomitant]
     Indication: LAXATIVE SUPPORTIVE CARE
  3. DROSPIRENONE AND ETHINYL ESTRADIOL [Suspect]
     Indication: CONTRACEPTION
     Dosage: UNK
     Route: 048
     Dates: start: 20081001, end: 20090707
  4. DROSPIRENONE AND ETHINYL ESTRADIOL [Suspect]
     Indication: ENDOMETRIOSIS
  5. IBUPROFEN [Concomitant]
     Dosage: 800 MG, UNK

REACTIONS (7)
  - PULMONARY EMBOLISM [None]
  - PAIN [None]
  - CHEST PAIN [None]
  - COUGH [None]
  - INJURY [None]
  - DEEP VEIN THROMBOSIS [None]
  - DYSPNOEA [None]
